FAERS Safety Report 9913989 (Version 1)
Quarter: 2014Q1

REPORT INFORMATION
  Report Type: Spontaneous
  Country: US (occurrence: None)
  Receive Date: 20140219
  Receipt Date: 20140219
  Transmission Date: 20141002
  Serious: Yes (Other)
  Sender: FDA-Public Use
  Company Number: None

PATIENT
  Age: 50 Year
  Sex: Female
  Weight: 83.01 kg

DRUGS (1)
  1. QSYMIA [Suspect]
     Indication: WEIGHT CONTROL
     Dosage: 1
     Route: 048
     Dates: start: 20130701, end: 20140130

REACTIONS (13)
  - Disturbance in attention [None]
  - Memory impairment [None]
  - Speech disorder [None]
  - Confusional state [None]
  - Impaired work ability [None]
  - Hypoaesthesia [None]
  - Hypoaesthesia [None]
  - Hypoaesthesia [None]
  - Hypoaesthesia [None]
  - Paraesthesia [None]
  - Paraesthesia [None]
  - Paraesthesia [None]
  - Dysgeusia [None]
